FAERS Safety Report 5070320-9 (Version None)
Quarter: 2006Q3

REPORT INFORMATION
  Report Type: 
  Country: None (occurrence: None)
  Receive Date: 20060731
  Receipt Date: 20060718
  Transmission Date: 20061208
  Serious: Yes (Hospitalization)
  Sender: FDA-Public Use
  Company Number: 2006RR-03021

PATIENT
  Age: 41 Year
  Sex: Female

DRUGS (9)
  1. CIPROFLOXACIN [Suspect]
     Dosage: 250 MG, BID, ORAL
     Route: 048
     Dates: start: 20060526, end: 20060529
  2. FOLIC ACID [Concomitant]
  3. LACTULOSE [Concomitant]
  4. LANSOPRAZOLE [Concomitant]
  5. ALTIZIDE-SPIRONOLACTONE (SPIRONOLACTONE, ALTIZIDE) [Concomitant]
  6. SUCRALFATE [Concomitant]
  7. TERLIPRESSIN [Concomitant]
  8. THIAMINE [Concomitant]
  9. VITAMIN B COMPLEX (NORSK) [Concomitant]

REACTIONS (3)
  - CONVULSION [None]
  - GRAND MAL CONVULSION [None]
  - MUSCLE TWITCHING [None]
